FAERS Safety Report 5197820-5 (Version None)
Quarter: 2006Q4

REPORT INFORMATION
  Report Type: 
  Country: None (occurrence: None)
  Receive Date: 20061228
  Receipt Date: 20061220
  Transmission Date: 20070319
  Serious: Yes (Other)
  Sender: FDA-Public Use
  Company Number: 2006-06282

PATIENT
  Age: 14 Day
  Sex: Female

DRUGS (3)
  1. CARBOPLATIN (WATSON LABORATORIES) INJECTION, 50MG [Suspect]
     Indication: RETINOBLASTOMA BILATERAL
     Dosage: SEE IMAGE
     Dates: start: 20060101, end: 20060101
  2. VINCRISTINE [Concomitant]
  3. ETOPOSIDE [Concomitant]

REACTIONS (2)
  - NECROSIS ISCHAEMIC [None]
  - OPTIC ATROPHY [None]
